FAERS Safety Report 17016582 (Version 1)
Quarter: 2019Q4

REPORT INFORMATION
  Report Type: Spontaneous
  Country: US (occurrence: US)
  Receive Date: 20191003
  Receipt Date: 20191003
  Transmission Date: 20200122
  Serious: Yes (Disabling)
  Sender: FDA-Public Use
  Company Number: None

PATIENT
  Age: 76 Year
  Sex: Male
  Weight: 79.83 kg

DRUGS (7)
  1. CVS HEALTH DRY EYE RELIEF [Suspect]
     Active Substance: GLYCERIN\HYPROMELLOSES\POLYETHYLENE GLYCOL 400
     Indication: POSTOPERATIVE CARE
     Dosage: ?          QUANTITY:30 ML MILLILITRE(S);OTHER FREQUENCY:5 X DAILY;?
     Route: 047
     Dates: start: 20180401, end: 20190720
  2. GLYBRAZIDE [Concomitant]
  3. SULFASALAZINE. [Concomitant]
     Active Substance: SULFASALAZINE
  4. CRESTOR [Concomitant]
     Active Substance: ROSUVASTATIN CALCIUM
  5. BLINK EYE DROP [Concomitant]
  6. LISINOPRIL/HCTZ [Concomitant]
     Active Substance: HYDROCHLOROTHIAZIDE\LISINOPRIL
  7. CVS HEALTH DRY EYE RELIEF [Suspect]
     Active Substance: GLYCERIN\HYPROMELLOSES\POLYETHYLENE GLYCOL 400
     Indication: CATARACT OPERATION
     Dosage: ?          QUANTITY:30 ML MILLILITRE(S);OTHER FREQUENCY:5 X DAILY;?
     Route: 047
     Dates: start: 20180401, end: 20190720

REACTIONS (5)
  - Instillation site pruritus [None]
  - Recalled product administered [None]
  - Product contamination [None]
  - Instillation site irritation [None]
  - Instillation site erythema [None]

NARRATIVE: CASE EVENT DATE: 20190720
